FAERS Safety Report 5169012-7 (Version None)
Quarter: 2006Q4

REPORT INFORMATION
  Report Type: 
  Country: None (occurrence: None)
  Receive Date: 20061204
  Receipt Date: 20061127
  Transmission Date: 20070319
  Serious: Yes (Other)
  Sender: FDA-Public Use
  Company Number: 2006145475

PATIENT
  Sex: Female

DRUGS (1)
  1. VISINE EYE DROPS [Suspect]
     Indication: ACCIDENTAL EXPOSURE
     Dosage: ORAL
     Route: 048
     Dates: start: 20060811, end: 20060811

REACTIONS (5)
  - ANOREXIA [None]
  - DIARRHOEA [None]
  - MALAISE [None]
  - VOMITING [None]
  - WEIGHT DECREASED [None]
